FAERS Safety Report 8777198 (Version 1)
Quarter: 2012Q4

REPORT INFORMATION
  Report Type: 
  Country: PH (occurrence: PH)
  Receive Date: 20120911
  Receipt Date: 20120911
  Transmission Date: 20130627
  Serious: Yes (Death, Hospitalization)
  Sender: FDA-Public Use
  Company Number: PH-BAXTER-2012BAX016533

PATIENT
  Age: 49 Year
  Sex: Male

DRUGS (1)
  1. CALCIUM CHLORIDE\DEXTROSE\MAGNESIUM CHLORIDE\SODIUM CHLORIDE\SODIUM LACTATE [Suspect]
     Indication: CONTINUOUS AMBULATORY PERITONEAL DIALYSIS
     Route: 033
     Dates: start: 20120429

REACTIONS (4)
  - Cardio-respiratory arrest [Fatal]
  - Arthralgia [Unknown]
  - Septic encephalopathy [Unknown]
  - Pyelonephritis acute [Unknown]
